FAERS Safety Report 8933189 (Version 2)
Quarter: 2013Q1

REPORT INFORMATION
  Report Type: Spontaneous
  Country: CA (occurrence: CA)
  Receive Date: 20121129
  Receipt Date: 20130107
  Transmission Date: 20140127
  Serious: Yes (Hospitalization, Other)
  Sender: FDA-Public Use
  Company Number: PHHY2010CA092885

PATIENT
  Age: 81 Year
  Sex: Male

DRUGS (5)
  1. AFINITOR [Suspect]
     Indication: RENAL CELL CARCINOMA
     Dosage: 5 MG, DAILY
     Route: 048
     Dates: start: 200911
  2. AFINITOR [Suspect]
     Dosage: 10 MG, DAILY
     Route: 048
     Dates: start: 201002
  3. AFINITOR [Suspect]
     Dosage: 5 MG, DAILY
     Route: 048
     Dates: start: 20100315, end: 20120729
  4. AFINITOR [Suspect]
     Dosage: 5 MG, DAILY
     Route: 048
     Dates: start: 20121102, end: 20121110
  5. AFINITOR [Suspect]
     Dosage: 5 MG, QD
     Route: 048
     Dates: start: 20121128

REACTIONS (5)
  - Chronic obstructive pulmonary disease [Recovered/Resolved]
  - Pleural effusion [Unknown]
  - Rash generalised [Unknown]
  - Pneumonia [Recovered/Resolved]
  - Malaise [Unknown]
